FAERS Safety Report 8474267-7 (Version None)
Quarter: 2012Q2

REPORT INFORMATION
  Report Type: 
  Country: None (occurrence: None)
  Receive Date: 20120628
  Receipt Date: 20120621
  Transmission Date: 20120825
  Serious: Yes (Other)
  Sender: FDA-Public Use
  Company Number: US-AMGEN-USASP2011028282

PATIENT
  Age: 61 Year
  Sex: Male

DRUGS (2)
  1. ENBREL [Suspect]
     Indication: PSORIASIS
     Dosage: 50 MG, QWK
     Dates: start: 20080101
  2. ENBREL [Suspect]
     Indication: PSORIATIC ARTHROPATHY

REACTIONS (3)
  - MONOCLONAL GAMMOPATHY [None]
  - SPINAL COMPRESSION FRACTURE [None]
  - ANAEMIA MACROCYTIC [None]
